FAERS Safety Report 8125966-8 (Version None)
Quarter: 2012Q1

REPORT INFORMATION
  Report Type: 
  Country: None (occurrence: None)
  Receive Date: 20120206
  Receipt Date: 20120124
  Transmission Date: 20120608
  Serious: Yes (Hospitalization)
  Sender: FDA-Public Use
  Company Number: WAES 1111USA03783B1

PATIENT
  Sex: Male

DRUGS (8)
  1. RETROVIR [Suspect]
     Indication: HIV INFECTION
     Dosage: 400 MG/DAILY TRANSPLACEN
     Route: 064
     Dates: start: 20100215, end: 20100302
  2. ISENTRESS [Suspect]
     Indication: HIV INFECTION
     Dosage: 800 MG/DAILY TRANSPLACEN
     Route: 064
     Dates: start: 20100215, end: 20100302
  3. EPIVIR [Suspect]
     Indication: HIV INFECTION
     Dosage: 150 MG/BID TRANSPLACE
     Route: 064
     Dates: start: 20100215, end: 20100302
  4. RETROVIR [Suspect]
     Dosage: 3 MG/Q6H PO
     Route: 048
     Dates: start: 20100302, end: 20100413
  5. EPIVIR [Suspect]
     Indication: PROPHYLAXIS AGAINST HIV INFECTION
     Dosage: 2 MG/KG/BID PO
     Route: 048
     Dates: start: 20100302, end: 20100413
  6. FERROUS CITRATE [Concomitant]
  7. KALETRA [Suspect]
     Indication: PROPHYLAXIS AGAINST HIV INFECTION
     Dosage: 6 MG/KG/BID PO
     Route: 048
     Dates: start: 20100302, end: 20100413
  8. LUTEONIN [Concomitant]

REACTIONS (6)
  - NAUSEA [None]
  - HYPOPHAGIA [None]
  - GASTROINTESTINAL DISORDER [None]
  - ANAEMIA NEONATAL [None]
  - VOMITING NEONATAL [None]
  - MATERNAL DRUGS AFFECTING FOETUS [None]
